FAERS Safety Report 7791914-3 (Version None)
Quarter: 2011Q4

REPORT INFORMATION
  Report Type: 
  Country: None (occurrence: None)
  Receive Date: 20111003
  Receipt Date: 20110919
  Transmission Date: 20120403
  Serious: Yes (Hospitalization)
  Sender: FDA-Public Use
  Company Number: IT-JNJFOC-20101204761

PATIENT
  Sex: Male
  Weight: 28.8 kg

DRUGS (8)
  1. REMICADE [Suspect]
     Route: 042
     Dates: start: 20101026
  2. REMICADE [Suspect]
     Route: 042
     Dates: start: 20110628
  3. MESALAMINE [Concomitant]
     Route: 054
  4. PREDNISONE [Concomitant]
  5. REMICADE [Suspect]
     Indication: CROHN'S DISEASE
     Route: 042
     Dates: start: 20091124
  6. AZATHIOPRINE [Concomitant]
  7. ANTIBIOTICS [Concomitant]
     Indication: CROHN'S DISEASE
  8. PPI [Concomitant]

REACTIONS (1)
  - CROHN'S DISEASE [None]
